FAERS Safety Report 9743238 (Version 1)
Quarter: 2013Q4

REPORT INFORMATION
  Report Type: Spontaneous
  Country: US (occurrence: US)
  Receive Date: 20131210
  Receipt Date: 20131210
  Transmission Date: 20140711
  Serious: No
  Sender: FDA-Public Use
  Company Number: US-GILEAD-2009-0025088

PATIENT
  Sex: Male

DRUGS (11)
  1. LETAIRIS [Suspect]
     Indication: PULMONARY ARTERIAL HYPERTENSION
     Route: 048
     Dates: start: 20090918
  2. REVATIO [Concomitant]
  3. COUMADIN [Concomitant]
  4. WARFARIN [Concomitant]
  5. EXFORGE [Concomitant]
  6. LASIX [Concomitant]
  7. ATACAND [Concomitant]
  8. LIPITOR [Concomitant]
  9. POTASSIUM [Concomitant]
  10. GLIPIZIDE [Concomitant]
  11. NAPROXEN [Concomitant]

REACTIONS (5)
  - Local swelling [Recovered/Resolved]
  - Swelling face [Recovered/Resolved]
  - Flushing [Recovered/Resolved]
  - Weight increased [Recovered/Resolved]
  - Fluid retention [Recovered/Resolved]
